FAERS Safety Report 12586189 (Version 1)
Quarter: 2016Q3

REPORT INFORMATION
  Report Type: Spontaneous
  Country: US (occurrence: None)
  Receive Date: 20160722
  Receipt Date: 20160722
  Transmission Date: 20161109
  Serious: Yes (Disabling)
  Sender: FDA-Public Use
  Company Number: None

PATIENT
  Age: 40 Year
  Sex: Female
  Weight: 50.35 kg

DRUGS (9)
  1. HUMIRA [Suspect]
     Active Substance: ADALIMUMAB
     Indication: PSORIASIS
     Dosage: 1 INJECTION(S)
     Route: 030
     Dates: start: 20160222, end: 20160422
  2. MAXALT [Concomitant]
     Active Substance: RIZATRIPTAN BENZOATE
  3. FOLIC ACID. [Concomitant]
     Active Substance: FOLIC ACID
  4. FISH OIL [Concomitant]
     Active Substance: FISH OIL
  5. MULTI-VITAMIN [Concomitant]
     Active Substance: .ALPHA.-TOCOPHEROL ACETATE, DL-\ASCORBIC ACID\CYANOCOBALAMIN\FLUORIDE ION\FOLIC ACID\NIACIN\PYRIDOXINE\RIBOFLAVIN\THIAMINE\VITAMIN A\VITAMIN D
  6. AUGMENTED BETAMETHASONE DIPROPITIONATE CREAM [Concomitant]
  7. DESONIDE CREAM USP 0.05% [Concomitant]
     Active Substance: DESONIDE
  8. METHOTREXATE. [Concomitant]
     Active Substance: METHOTREXATE
  9. MIDOL [Concomitant]
     Active Substance: IBUPROFEN

REACTIONS (12)
  - Alopecia [None]
  - Nail discolouration [None]
  - Insomnia [None]
  - Night sweats [None]
  - Blister [None]
  - Rash [None]
  - Onychoclasis [None]
  - Skin ulcer haemorrhage [None]
  - Paraesthesia [None]
  - Skin fissures [None]
  - Weight decreased [None]
  - Burning sensation [None]

NARRATIVE: CASE EVENT DATE: 20160422
